FAERS Safety Report 8927449 (Version 1)
Quarter: 2012Q4

REPORT INFORMATION
  Report Type: 
  Country: US (occurrence: US)
  Receive Date: 20121127
  Receipt Date: 20121127
  Transmission Date: 20130627
  Serious: No
  Sender: FDA-Public Use
  Company Number: US-MYLANLABS-2012S1008095

PATIENT
  Age: 71 Year
  Sex: Female

DRUGS (1)
  1. AMIODARONE HYDROCHLORIDE [Suspect]
     Indication: ATRIAL FIBRILLATION
     Dosage: 0.5mg/min
     Route: 042
     Dates: start: 20120416

REACTIONS (3)
  - Extravasation [Not Recovered/Not Resolved]
  - Infusion site bruising [Recovering/Resolving]
  - Feeling hot [Not Recovered/Not Resolved]
